FAERS Safety Report 5491827-6 (Version None)
Quarter: 2007Q4

REPORT INFORMATION
  Report Type: 
  Country: None (occurrence: None)
  Receive Date: 20071022
  Receipt Date: 20071011
  Transmission Date: 20080405
  Serious: Yes (Death)
  Sender: FDA-Public Use
  Company Number: US-KINGPHARMUSA00001-K200701323

PATIENT

DRUGS (16)
  1. SEPTRA DS [Suspect]
     Indication: PROPHYLAXIS
  2. LANSOPRAZOLE [Suspect]
     Indication: PROPHYLAXIS
     Dosage: 30 MG, UNK
     Route: 048
     Dates: start: 20070528, end: 20070709
  3. VANCOMYCIN [Suspect]
     Indication: PROPHYLAXIS
     Dosage: 1 G, BID
  4. LOSEC  /00661201/ [Suspect]
     Indication: PROPHYLAXIS
     Dosage: 40 MG, UNK
     Route: 042
  5. CLEXANE [Suspect]
     Indication: PROPHYLAXIS
  6. DIFENE [Suspect]
     Indication: PROPHYLAXIS
  7. TARGOCID [Suspect]
     Indication: PROPHYLAXIS
  8. VELOCEF [Suspect]
     Indication: PROPHYLAXIS
     Dates: start: 20070625, end: 20070626
  9. INNOHEP /01707902/ [Suspect]
     Indication: PROPHYLAXIS
     Dosage: UNK, UNK
     Dates: start: 20070622
  10. ZYVOX [Suspect]
     Indication: PROPHYLAXIS
  11. INDAPAMIDE [Concomitant]
  12. VALSARTAN [Concomitant]
  13. METRONIDAZOLE [Concomitant]
  14. BISOPROLOL FUMARATE [Concomitant]
  15. ASPIRIN [Concomitant]
  16. FUSIDATE SODIUM [Concomitant]

REACTIONS (2)
  - DEATH [None]
  - TOXIC EPIDERMAL NECROLYSIS [None]
